FAERS Safety Report 4666195-X (Version None)
Quarter: 2005Q2

REPORT INFORMATION
  Report Type: 
  Country: None (occurrence: None)
  Receive Date: 20050517
  Receipt Date: 20050517
  Transmission Date: 20051028
  Serious: Yes (Other)
  Sender: FDA-Public Use
  Company Number: None

PATIENT
  Age: 49 Year
  Sex: Female
  Weight: 63.5036 kg

DRUGS (2)
  1. MOBIC [Suspect]
     Indication: SHOULDER PAIN
     Dosage: 1 TAB BID
  2. LORCET PLUS-(HYDROCODONE/APAP) [Concomitant]

REACTIONS (6)
  - ABDOMINAL PAIN UPPER [None]
  - FATIGUE [None]
  - MUSCLE FATIGUE [None]
  - MUSCLE SPASMS [None]
  - RASH MACULAR [None]
  - TENDERNESS [None]
